FAERS Safety Report 23291725 (Version 1)
Quarter: 2023Q4

REPORT INFORMATION
  Report Type: Spontaneous
  Country: US (occurrence: None)
  Receive Date: 20231212
  Receipt Date: 20231212
  Transmission Date: 20240110
  Serious: Yes (Hospitalization)
  Sender: FDA-Public Use
  Company Number: None

PATIENT
  Age: 32 Year
  Sex: Female

DRUGS (2)
  1. AMBRISENTAN [Suspect]
     Active Substance: AMBRISENTAN
     Indication: Pulmonary arterial hypertension
     Dosage: 10 MG DAILY ORAL
     Route: 048
     Dates: start: 20201109
  2. SILDENAFIL [Suspect]
     Active Substance: SILDENAFIL
     Dates: start: 20200309

REACTIONS (3)
  - Oxygen saturation decreased [None]
  - Therapy interrupted [None]
  - Pulmonary thrombosis [None]

NARRATIVE: CASE EVENT DATE: 20231211
